FAERS Safety Report 23208132 (Version 10)
Quarter: 2024Q1

REPORT INFORMATION
  Report Type: Spontaneous
  Country: GB (occurrence: GB)
  Receive Date: 20231121
  Receipt Date: 20240321
  Transmission Date: 20240410
  Serious: Yes (Other)
  Sender: FDA-Public Use
  Company Number: GB-CELLTRION INC.-2023GB022181

PATIENT

DRUGS (2)
  1. ADALIMUMAB [Suspect]
     Active Substance: ADALIMUMAB\ISOPROPYL ALCOHOL
     Indication: Product used for unknown indication
     Dosage: DOSAGE1: UNIT -NOT AVAILABLE; ;
     Route: 050
  2. SECUKINUMAB [Suspect]
     Active Substance: SECUKINUMAB
     Indication: Product used for unknown indication
     Dosage: ADDITIONAL INFORMATION ON DRUG (FREE TEXT): ADDITIONAL INFO: ROUTE:UNKNOWN
     Route: 050

REACTIONS (1)
  - Systemic lupus erythematosus [Unknown]
